FAERS Safety Report 16510905 (Version 1)
Quarter: 2019Q3

REPORT INFORMATION
  Report Type: Spontaneous
  Country: US (occurrence: US)
  Receive Date: 20190702
  Receipt Date: 20190702
  Transmission Date: 20191004
  Serious: No
  Sender: FDA-Public Use
  Company Number: US-ACCORD-068596

PATIENT
  Age: 72 Year
  Sex: Male
  Weight: 83.91 kg

DRUGS (1)
  1. ALLOPURINOL ACCORD [Suspect]
     Active Substance: ALLOPURINOL
     Indication: PROPHYLAXIS
     Route: 048

REACTIONS (5)
  - Cheilitis [Unknown]
  - Stomatitis [Unknown]
  - Dysgeusia [Unknown]
  - Product substitution issue [Unknown]
  - Gingival discomfort [Unknown]
